FAERS Safety Report 23641493 (Version 1)
Quarter: 2024Q1

REPORT INFORMATION
  Report Type: Spontaneous
  Country: IT (occurrence: IT)
  Receive Date: 20240318
  Receipt Date: 20240318
  Transmission Date: 20240410
  Serious: Yes (Hospitalization)
  Sender: FDA-Public Use
  Company Number: None

PATIENT
  Age: 39 Year
  Sex: Male

DRUGS (2)
  1. CLONAZEPAM [Suspect]
     Active Substance: CLONAZEPAM
     Indication: Suicide attempt
     Dosage: RIVOTRIL 2 MG , TAKES 20 TABLETS (40MG)
     Route: 048
     Dates: start: 20240117, end: 20240117
  2. VALPROATE SODIUM [Suspect]
     Active Substance: VALPROATE SODIUM
     Indication: Suicide attempt
     Dosage: DEPAKIN CHRONO 300 MG TAKES 20 TABLETS (6G)
     Route: 048
     Dates: start: 20240117, end: 20240117

REACTIONS (2)
  - Drug abuse [Recovered/Resolved]
  - Psychogenic seizure [Recovered/Resolved]

NARRATIVE: CASE EVENT DATE: 20240118
